FAERS Safety Report 5856137-3 (Version None)
Quarter: 2008Q3

REPORT INFORMATION
  Report Type: 
  Country: None (occurrence: None)
  Receive Date: 20080825
  Receipt Date: 20080812
  Transmission Date: 20090109
  Serious: Yes (Hospitalization, Other)
  Sender: FDA-Public Use
  Company Number: FR-ROCHE-567654

PATIENT
  Age: 84 Year
  Sex: Female

DRUGS (1)
  1. TAMIFLU [Suspect]
     Indication: DRUG USE FOR UNKNOWN INDICATION
     Route: 065

REACTIONS (5)
  - ALOPECIA [None]
  - ARRHYTHMIA [None]
  - ISCHAEMIA [None]
  - PNEUMONIA [None]
  - WEIGHT DECREASED [None]
